FAERS Safety Report 7866672-4 (Version None)
Quarter: 2011Q4

REPORT INFORMATION
  Report Type: 
  Country: None (occurrence: None)
  Receive Date: 20111028
  Receipt Date: 20110726
  Transmission Date: 20120403
  Serious: No
  Sender: FDA-Public Use
  Company Number: US-GLAXOSMITHKLINE-A0938373A

PATIENT
  Age: 58 Year
  Sex: Female

DRUGS (7)
  1. RECLAST [Concomitant]
  2. PROVENTIL [Concomitant]
  3. HORMONE TREATMENT [Concomitant]
  4. ADVAIR DISKUS 100/50 [Suspect]
     Indication: CHRONIC OBSTRUCTIVE PULMONARY DISEASE
     Dosage: 1PUFF TWICE PER DAY
     Route: 055
     Dates: start: 20010401
  5. CALCIUM CARBONATE [Concomitant]
  6. VITAMIN D [Concomitant]
  7. CHANTIX [Concomitant]

REACTIONS (1)
  - OSTEOPOROSIS [None]
